FAERS Safety Report 10045833 (Version 1)
Quarter: 2014Q1

REPORT INFORMATION
  Report Type: Spontaneous
  Country: US (occurrence: US)
  Receive Date: 20140328
  Receipt Date: 20140328
  Transmission Date: 20141002
  Serious: Yes (Hospitalization)
  Sender: FDA-Public Use
  Company Number: US-ASTRAZENECA-2014SE20314

PATIENT
  Age: 243 Day
  Sex: Female

DRUGS (2)
  1. SYNAGIS [Suspect]
     Route: 030
  2. SYNAGIS [Suspect]
     Route: 030
     Dates: start: 20140324

REACTIONS (1)
  - Bacterial infection [Unknown]
